FAERS Safety Report 18933211 (Version 1)
Quarter: 2021Q1

REPORT INFORMATION
  Report Type: Spontaneous
  Country: US (occurrence: US)
  Receive Date: 20210223
  Receipt Date: 20210223
  Transmission Date: 20210420
  Serious: No
  Sender: FDA-Public Use
  Company Number: None

PATIENT
  Age: 74 Year
  Sex: Male

DRUGS (1)
  1. REVLIMID [Suspect]
     Active Substance: LENALIDOMIDE
     Indication: PLASMA CELL MYELOMA
     Route: 048
     Dates: start: 20190405, end: 20210212

REACTIONS (4)
  - Rash [None]
  - Diarrhoea [None]
  - Fatigue [None]
  - Clostridium difficile colitis [None]

NARRATIVE: CASE EVENT DATE: 20210212
